FAERS Safety Report 7892453-1 (Version None)
Quarter: 2011Q4

REPORT INFORMATION
  Report Type: 
  Country: None (occurrence: None)
  Receive Date: 20111104
  Receipt Date: 20111027
  Transmission Date: 20120403
  Serious: Yes (Other)
  Sender: FDA-Public Use
  Company Number: US-US-EMD SERONO, INC.-7089087

PATIENT
  Sex: Female

DRUGS (1)
  1. REBIF [Suspect]
     Indication: MULTIPLE SCLEROSIS
     Route: 058
     Dates: start: 20110613

REACTIONS (7)
  - EYE SWELLING [None]
  - STRESS [None]
  - INJECTION SITE PAIN [None]
  - RETINAL DISORDER [None]
  - INFLUENZA LIKE ILLNESS [None]
  - SCOTOMA [None]
  - INJECTION SITE ERYTHEMA [None]
